FAERS Safety Report 24718027 (Version 2)
Quarter: 2025Q1

REPORT INFORMATION
  Report Type: Report from Study
  Country: CN (occurrence: CN)
  Receive Date: 20241210
  Receipt Date: 20250106
  Transmission Date: 20250408
  Serious: Yes (Death, Hospitalization, Other)
  Sender: GILEAD
  Company Number: CN-GILEAD-2024-0695860

PATIENT
  Age: 52 Year
  Sex: Female

DRUGS (2)
  1. SACITUZUMAB GOVITECAN-HZIY [Suspect]
     Active Substance: SACITUZUMAB GOVITECAN-HZIY
     Indication: Product used for unknown indication
     Dosage: 360 MG, Q3WK,  D1, D8,
     Route: 065
     Dates: start: 20241012
  2. SACITUZUMAB GOVITECAN-HZIY [Suspect]
     Active Substance: SACITUZUMAB GOVITECAN-HZIY
     Route: 065

REACTIONS (10)
  - Respiratory failure [Fatal]
  - Hepatic failure [Fatal]
  - Anaemia [Fatal]
  - Electrolyte imbalance [Fatal]
  - Pleural effusion [Fatal]
  - Hypoproteinaemia [Fatal]
  - Myelosuppression [Fatal]
  - Myocardial necrosis marker increased [Fatal]
  - Gastrointestinal haemorrhage [Fatal]
  - Drug ineffective [Unknown]
